FAERS Safety Report 16374575 (Version 2)
Quarter: 2019Q2

REPORT INFORMATION
  Report Type: Report from Study
  Country: None (occurrence: FR)
  Receive Date: 20190530
  Receipt Date: 20190625
  Transmission Date: 20190711
  Serious: Yes (Hospitalization, Other)
  Sender: FDA-Public Use
  Company Number: FR-ABBVIE-19P-056-2799231-00

PATIENT
  Age: 13 Year
  Sex: Male
  Weight: 40.4 kg

DRUGS (4)
  1. MODULEN [Concomitant]
     Indication: CROHN^S DISEASE
     Route: 048
     Dates: start: 20160413
  2. HUMIRA [Suspect]
     Active Substance: ADALIMUMAB
     Indication: CROHN^S DISEASE
     Route: 058
     Dates: start: 20160108
  3. DECAPEPTIL [Concomitant]
     Indication: PRECOCIOUS PUBERTY
     Route: 030
     Dates: start: 201103
  4. HYDROCORTISONE. [Concomitant]
     Active Substance: HYDROCORTISONE
     Indication: ADDISON^S DISEASE
     Route: 048
     Dates: start: 20130306

REACTIONS (1)
  - Epiphysiolysis [Recovered/Resolved]

NARRATIVE: CASE EVENT DATE: 20180606
